FAERS Safety Report 21475297 (Version 1)
Quarter: 2022Q4

REPORT INFORMATION
  Report Type: Other
  Country: GB (occurrence: GB)
  Receive Date: 20221019
  Receipt Date: 20221019
  Transmission Date: 20230113
  Serious: Yes (Other)
  Sender: FDA-Public Use
  Company Number: None

PATIENT
  Age: 39 Year
  Sex: Female
  Weight: 96 kg

DRUGS (13)
  1. PREDNISOLONE [Suspect]
     Active Substance: PREDNISOLONE
     Indication: Facial paralysis
     Dosage: 60 MILLIGRAM PER DAY (IN THE MORNING); (UNCOATED,TABLET )
     Route: 048
     Dates: start: 20220927
  2. CETIRIZINE [Suspect]
     Active Substance: CETIRIZINE HYDROCHLORIDE
     Indication: Mast cell activation syndrome
     Dosage: UNK
     Route: 065
     Dates: start: 20160101
  3. PROPRANOLOL [Suspect]
     Active Substance: PROPRANOLOL HYDROCHLORIDE
     Indication: Autonomic nervous system imbalance
     Dosage: UNK
     Route: 065
     Dates: start: 20220701
  4. MAGNESIUM CARBONATE [Concomitant]
     Active Substance: MAGNESIUM CARBONATE
     Indication: Supportive care
     Dosage: UNK
     Route: 065
     Dates: start: 20220101
  5. CALCIUM [Concomitant]
     Active Substance: CALCIUM
     Indication: Supportive care
     Dosage: UNK
     Route: 065
     Dates: start: 20220101
  6. DULOXETINE [Concomitant]
     Active Substance: DULOXETINE
     Indication: Pain management
     Dosage: UNK
     Route: 065
     Dates: start: 20170101
  7. IVABRADINE [Concomitant]
     Active Substance: IVABRADINE
     Indication: Autonomic nervous system imbalance
     Dosage: UNK
     Route: 065
     Dates: start: 20190101
  8. LACTOBACILLUS ACIDOPHILUS [Concomitant]
     Active Substance: LACTOBACILLUS ACIDOPHILUS
     Indication: Probiotic therapy
     Dosage: UNK
     Route: 065
     Dates: start: 20220101
  9. METHYLPHENIDATE [Concomitant]
     Active Substance: METHYLPHENIDATE
     Indication: Attention deficit hyperactivity disorder
     Dosage: UNK
     Route: 065
     Dates: start: 20220201
  10. NAPROXEN [Concomitant]
     Active Substance: NAPROXEN
     Indication: Analgesic intervention supportive therapy
     Dosage: UNK
     Route: 065
     Dates: start: 20170101
  11. OMEGA-3 FATTY ACIDS [Concomitant]
     Active Substance: OMEGA-3 FATTY ACIDS
     Indication: Arthralgia
     Dosage: UNK
     Route: 065
     Dates: start: 20220101
  12. OMEPRAZOLE [Concomitant]
     Active Substance: OMEPRAZOLE
     Indication: Gastritis prophylaxis
     Dosage: UNK
     Route: 065
     Dates: start: 20170101
  13. VITAMIN B COMPLEX [Concomitant]
     Active Substance: CYANOCOBALAMIN\DEXPANTHENOL\NIACINAMIDE\PYRIDOXINE HYDROCHLORIDE\RIBOFLAVIN 5^-PHOSPHATE SODIUM\THIA
     Indication: Anaemia prophylaxis
     Dosage: UNK
     Route: 065
     Dates: start: 20160101

REACTIONS (7)
  - Tremor [Unknown]
  - Rash [Recovered/Resolved]
  - Fatigue [Recovered/Resolved]
  - Hyperglycaemia [Recovered/Resolved]
  - Hemiparesis [Recovered/Resolved]
  - Malaise [Unknown]
  - Off label use [Unknown]

NARRATIVE: CASE EVENT DATE: 20220928
